FAERS Safety Report 5337586-9 (Version None)
Quarter: 2007Q2

REPORT INFORMATION
  Report Type: 
  Country: None (occurrence: None)
  Receive Date: 20070529
  Receipt Date: 20070515
  Transmission Date: 20071010
  Serious: Yes (Death, Other)
  Sender: FDA-Public Use
  Company Number: IT-MERCK-0705ITA00017

PATIENT
  Age: 7 Year
  Sex: Female

DRUGS (10)
  1. CANCIDAS [Suspect]
     Indication: BRONCHOPULMONARY ASPERGILLOSIS
     Route: 041
  2. CANCIDAS [Suspect]
     Route: 041
  3. AMPHOTERICIN B [Suspect]
     Route: 065
  4. FLUDARABINE PHOSPHATE [Concomitant]
     Route: 065
  5. ETOPOSIDE [Concomitant]
     Route: 065
  6. MELPHALAN [Concomitant]
     Route: 065
  7. ANTILYMPHOCYTE IMMUNOGLOBULIN [Suspect]
     Route: 065
  8. METHOTREXATE [Suspect]
     Route: 065
  9. CYCLOSPORINE [Suspect]
     Route: 065
  10. VORICONAZOLE [Suspect]
     Route: 065

REACTIONS (11)
  - ACUTE GRAFT VERSUS HOST DISEASE [None]
  - ACUTE MYELOID LEUKAEMIA [None]
  - BRONCHOPULMONARY ASPERGILLOSIS [None]
  - CHRONIC GRAFT VERSUS HOST DISEASE [None]
  - DRUG INEFFECTIVE [None]
  - GRAFT VERSUS HOST DISEASE [None]
  - HYPERGLYCAEMIA [None]
  - MEDICATION ERROR [None]
  - METABOLIC ENCEPHALOPATHY [None]
  - PEARSON'S SYNDROME [None]
  - RENAL TUBULAR DISORDER [None]
